FAERS Safety Report 15125782 (Version 1)
Quarter: 2018Q3

REPORT INFORMATION
  Report Type: Spontaneous
  Country: US (occurrence: US)
  Receive Date: 20180710
  Receipt Date: 20180710
  Transmission Date: 20181010
  Serious: No
  Sender: FDA-Public Use
  Company Number: US-VIFOR (INTERNATIONAL) INC.-VIT-2018-06535

PATIENT
  Sex: Female

DRUGS (3)
  1. LEVODOPA~~CARBIDOPA [Concomitant]
  2. SEROQUEL [Concomitant]
     Active Substance: QUETIAPINE FUMARATE
  3. VELTASSA [Suspect]
     Active Substance: PATIROMER
     Indication: PARKINSON^S DISEASE
     Route: 065

REACTIONS (3)
  - Intentional product use issue [Unknown]
  - Drug ineffective [Unknown]
  - No adverse event [Unknown]
